FAERS Safety Report 9103152 (Version 2)
Quarter: 2013Q1

REPORT INFORMATION
  Report Type: Spontaneous
  Country: IT (occurrence: None)
  Receive Date: 20130125
  Receipt Date: 20130211
  Transmission Date: 20140127
  Serious: Yes (Hospitalization)
  Sender: FDA-Public Use
  Company Number: VAL_01275_2013

PATIENT
  Age: 62 Year
  Sex: Female

DRUGS (11)
  1. ROCALTROL [Suspect]
     Indication: HYPOCALCAEMIA
     Route: 048
     Dates: start: 20110201, end: 20121010
  2. CALCIUM [Suspect]
     Route: 048
     Dates: start: 20110201, end: 20121010
  3. METFORMIN HYDROCHLORIDE [Concomitant]
  4. ZANEDIP [Concomitant]
  5. TRIATEC [Concomitant]
  6. TEGRETOL [Concomitant]
  7. ESKIM [Concomitant]
  8. AMARYL [Concomitant]
  9. DEPAKIN [Concomitant]
  10. MAG 2 [Concomitant]
  11. CRESTOR [Concomitant]

REACTIONS (1)
  - Hypercalcaemia [None]
